FAERS Safety Report 5258302-5 (Version None)
Quarter: 2007Q1

REPORT INFORMATION
  Report Type: 
  Country: None (occurrence: None)
  Receive Date: 20070306
  Receipt Date: 20070306
  Transmission Date: 20070707
  Serious: No
  Sender: FDA-Public Use
  Company Number: None

PATIENT
  Age: 43 Year
  Sex: Female
  Weight: 65.318 kg

DRUGS (1)
  1. CYNTEST [Suspect]
     Indication: MENOPAUSE
     Dosage: .625-1.25 MG 1 DAILY ORAL
     Route: 048
     Dates: start: 20060614, end: 20070305

REACTIONS (3)
  - DISTURBANCE IN ATTENTION [None]
  - PHARMACEUTICAL PRODUCT COMPLAINT [None]
  - POOR QUALITY SLEEP [None]
